FAERS Safety Report 8360075-4 (Version None)
Quarter: 2012Q2

REPORT INFORMATION
  Report Type: 
  Country: None (occurrence: None)
  Receive Date: 20120515
  Receipt Date: 20110526
  Transmission Date: 20120825
  Serious: No
  Sender: FDA-Public Use
  Company Number: US-ALEXION-A201100754

PATIENT
  Sex: Male

DRUGS (7)
  1. FERROUS SULFATE TAB [Concomitant]
     Dosage: UNK
  2. FOLIC ACID [Concomitant]
     Dosage: UNK
  3. SOLIRIS [Suspect]
     Dosage: 900 MG Q2W
     Route: 042
     Dates: start: 20110623
  4. LOPRESSOR [Concomitant]
     Indication: HYPERTENSION
     Dosage: UNK
  5. CIALIS [Concomitant]
     Dosage: UNK
  6. COUMADIN [Concomitant]
     Indication: THROMBOSIS
     Dosage: UNK
  7. SOLIRIS [Suspect]
     Indication: PAROXYSMAL NOCTURNAL HAEMOGLOBINURIA
     Dosage: 600 MG QW
     Route: 042
     Dates: start: 20110526, end: 20110616

REACTIONS (2)
  - VISION BLURRED [None]
  - BLOOD PRESSURE INCREASED [None]
